FAERS Safety Report 8049978-8 (Version None)
Quarter: 2012Q1

REPORT INFORMATION
  Report Type: 
  Country: None (occurrence: None)
  Receive Date: 20120117
  Receipt Date: 20120111
  Transmission Date: 20120608
  Serious: Yes (Hospitalization, Other)
  Sender: FDA-Public Use
  Company Number: US-PFIZER INC-2011264164

PATIENT
  Age: 63 Year
  Sex: Male
  Weight: 77 kg

DRUGS (7)
  1. IBUPROFEN (ADVIL) [Suspect]
     Indication: PAIN
     Dosage: 200 MG, AS NEEDED
  2. VIREAD [Suspect]
     Indication: HIV INFECTION
     Dosage: 300 MG, 1X/DAY
     Route: 048
     Dates: start: 20070111, end: 20110926
  3. NORVIR [Concomitant]
     Dosage: UNK
     Dates: start: 20070111
  4. ETRAVIRINE [Concomitant]
     Dosage: UNK
     Dates: start: 20070111, end: 20110926
  5. CALCIUM [Concomitant]
  6. VITAMIN D [Concomitant]
  7. PREZISTA [Concomitant]
     Dosage: UNK
     Dates: start: 20070111, end: 20110926

REACTIONS (3)
  - CORONARY ARTERY DISEASE [None]
  - FANCONI SYNDROME [None]
  - ANGINA PECTORIS [None]
